FAERS Safety Report 16238218 (Version 1)
Quarter: 2019Q2

REPORT INFORMATION
  Report Type: Spontaneous
  Country: US (occurrence: US)
  Receive Date: 20190425
  Receipt Date: 20190425
  Transmission Date: 20190711
  Serious: Yes (Hospitalization)
  Sender: FDA-Public Use
  Company Number: US-MYLANLABS-2007S1013104

PATIENT
  Age: 73 Year
  Sex: Male

DRUGS (10)
  1. VITAMIN D (ERGOCALCIFEROL) [Suspect]
     Active Substance: ERGOCALCIFEROL
     Indication: PRODUCT USED FOR UNKNOWN INDICATION
     Dosage: UNK
  2. LEVOTHYROXINE SODIUM. [Concomitant]
     Active Substance: LEVOTHYROXINE SODIUM
     Indication: HYPOTHYROIDISM
     Dosage: 75 MICROGRAM, QD
  3. CALCIUM CARBONATE. [Suspect]
     Active Substance: CALCIUM CARBONATE
     Indication: PRODUCT USED FOR UNKNOWN INDICATION
     Dosage: 650 MILLIGRAM, QD
  4. FUROSEMIDE. [Suspect]
     Active Substance: FUROSEMIDE
     Indication: PRODUCT USED FOR UNKNOWN INDICATION
     Dosage: UNK
  5. ASCORBIC ACID. [Suspect]
     Active Substance: ASCORBIC ACID
     Indication: PRODUCT USED FOR UNKNOWN INDICATION
     Dosage: 500 MILLIGRAM, QD
  6. ASCORBIC ACID. [Suspect]
     Active Substance: ASCORBIC ACID
     Dosage: 180 MILLIGRAM, QD
  7. MAGNESIUM OXIDE. [Suspect]
     Active Substance: MAGNESIUM OXIDE
     Indication: PRODUCT USED FOR UNKNOWN INDICATION
     Dosage: 800 MICROGRAM, QD
  8. RETINOL [Suspect]
     Active Substance: RETINOL
     Indication: PRODUCT USED FOR UNKNOWN INDICATION
     Dosage: 10000 INTERNATIONAL UNIT, QD
  9. LISINOPRIL. [Concomitant]
     Active Substance: LISINOPRIL
     Indication: PRODUCT USED FOR UNKNOWN INDICATION
     Dosage: 5 MILLIGRAM, QD
  10. NICOTINIC ACID [Suspect]
     Active Substance: NIACIN
     Indication: PRODUCT USED FOR UNKNOWN INDICATION
     Dosage: 500 MILLIGRAM, QD

REACTIONS (6)
  - Chronic kidney disease [Recovering/Resolving]
  - Hypercalciuria [Recovering/Resolving]
  - Diarrhoea [Recovered/Resolved]
  - Tubulointerstitial nephritis [Recovering/Resolving]
  - Hyperoxaluria [Recovering/Resolving]
  - Hypercalcaemia [Recovered/Resolved]
